FAERS Safety Report 13623737 (Version 1)
Quarter: 2017Q2

REPORT INFORMATION
  Report Type: Other
  Country: BE (occurrence: BE)
  Receive Date: 20170608
  Receipt Date: 20170608
  Transmission Date: 20170830
  Serious: Yes (Hospitalization, Other)
  Sender: FDA-Public Use
  Company Number: BE-ORCHID HEALTHCARE-2021665

PATIENT
  Age: 45 Year
  Sex: Female

DRUGS (3)
  1. PANTOPRAZOLE SODIUM. [Suspect]
     Active Substance: PANTOPRAZOLE SODIUM
     Indication: GASTRIC ULCER
     Route: 065
  2. ADALIMUMAB [Suspect]
     Active Substance: ADALIMUMAB
     Route: 065
  3. CEFTRIAXONE. [Suspect]
     Active Substance: CEFTRIAXONE
     Route: 065

REACTIONS (3)
  - Granuloma [Recovered/Resolved]
  - Latent tuberculosis [Recovered/Resolved]
  - Tubulointerstitial nephritis [Recovered/Resolved]
